FAERS Safety Report 23495127 (Version 1)
Quarter: 2024Q1

REPORT INFORMATION
  Report Type: Spontaneous
  Country: US (occurrence: None)
  Receive Date: 20240206
  Receipt Date: 20240206
  Transmission Date: 20240409
  Serious: Yes (Death)
  Sender: FDA-Public Use
  Company Number: None

PATIENT
  Age: 81 Year
  Sex: Male

DRUGS (1)
  1. BOTOX [Suspect]
     Active Substance: ONABOTULINUMTOXINA
     Indication: Monoplegia
     Dosage: OTHER FREQUENCY : Q 90 DAYS;?
     Route: 030
     Dates: start: 20230928

REACTIONS (1)
  - Death [None]

NARRATIVE: CASE EVENT DATE: 20240203
